FAERS Safety Report 13819375 (Version 4)
Quarter: 2017Q3

REPORT INFORMATION
  Report Type: Spontaneous
  Country: US (occurrence: US)
  Receive Date: 20170801
  Receipt Date: 20170918
  Transmission Date: 20171127
  Serious: Yes (Life-Threatening, Other)
  Sender: FDA-Public Use
  Company Number: US-LUPIN PHARMACEUTICALS INC.-2017-04156

PATIENT
  Age: 71 Year
  Sex: Female
  Weight: 74.83 kg

DRUGS (4)
  1. DESVENLAFAXINE EXTENDED RELEASE TABLET 100MG [Suspect]
     Active Substance: DESVENLAFAXINE
     Indication: MAJOR DEPRESSION
     Dosage: 100 MG, QD
     Route: 048
     Dates: start: 201701
  2. DIAZEPAM. [Concomitant]
     Active Substance: DIAZEPAM
     Indication: DEPRESSION
     Dosage: 2 MG, TID
     Route: 065
  3. DESVENLAFAXINE EXTENDED RELEASE TABLET 50 MG [Suspect]
     Active Substance: DESVENLAFAXINE
     Indication: MAJOR DEPRESSION
     Dosage: 50 MG, QD
     Route: 048
     Dates: start: 20170420, end: 20170511
  4. RITALIN [Concomitant]
     Active Substance: METHYLPHENIDATE HYDROCHLORIDE
     Indication: DEPRESSION
     Dosage: 5 MG, 6 TIMES PER DAY
     Route: 065

REACTIONS (5)
  - Suicide attempt [Recovered/Resolved]
  - Drug ineffective [Unknown]
  - Suicidal ideation [Not Recovered/Not Resolved]
  - Depression [Not Recovered/Not Resolved]
  - Product substitution issue [Unknown]

NARRATIVE: CASE EVENT DATE: 201701
